FAERS Safety Report 6644371-4 (Version None)
Quarter: 2010Q1

REPORT INFORMATION
  Report Type: 
  Country: None (occurrence: None)
  Receive Date: 20100322
  Receipt Date: 20100317
  Transmission Date: 20100710
  Serious: Yes (Hospitalization)
  Sender: FDA-Public Use
  Company Number: FR-ROCHE-677080

PATIENT
  Sex: Male

DRUGS (9)
  1. APRANAX [Suspect]
     Indication: DRUG USE FOR UNKNOWN INDICATION
     Route: 030
  2. HEXAQUINE [Suspect]
     Indication: DRUG USE FOR UNKNOWN INDICATION
     Route: 065
  3. INIPOMP [Suspect]
     Indication: DRUG USE FOR UNKNOWN INDICATION
     Dosage: LONG TERM TREATMENT STOPPED
     Route: 065
  4. PANDEMRIX [Suspect]
     Dosage: INDICATION: H1N1 INFLUENZA VACCINATION
     Route: 030
     Dates: start: 20091124
  5. FOZITEC [Concomitant]
  6. MYOLASTAN [Concomitant]
  7. TAHOR [Concomitant]
  8. VENTOLIN [Concomitant]
  9. SERETIDE [Concomitant]

REACTIONS (1)
  - THROMBOCYTOPENIC PURPURA [None]
